FAERS Safety Report 18522576 (Version 1)
Quarter: 2020Q4

REPORT INFORMATION
  Report Type: Spontaneous
  Country: US (occurrence: US)
  Receive Date: 20201119
  Receipt Date: 20201119
  Transmission Date: 20210114
  Serious: Yes (Other)
  Sender: FDA-Public Use
  Company Number: US-STRIDES ARCOLAB LIMITED-2020SP013282

PATIENT
  Age: 62 Year
  Sex: Female

DRUGS (3)
  1. TYLENOL [Concomitant]
     Active Substance: ACETAMINOPHEN
     Indication: PAIN
     Dosage: UNK
     Route: 065
  2. ADVIL [IBUPROFEN] [Concomitant]
     Active Substance: IBUPROFEN
     Indication: HEADACHE
     Dosage: UNK
     Route: 065
  3. NITETHRU (MELATONIN) [Suspect]
     Active Substance: MELATONIN
     Indication: SLEEP APNOEA SYNDROME
     Dosage: TOOK ONE TABLET BEFORE BEDTIME
     Route: 065
     Dates: start: 20201028

REACTIONS (6)
  - Agitation [Unknown]
  - Hallucination [Unknown]
  - Drug ineffective [Unknown]
  - Nightmare [Unknown]
  - Nausea [Unknown]
  - Hyperhidrosis [Unknown]

NARRATIVE: CASE EVENT DATE: 20201028
